FAERS Safety Report 5895656-0 (Version None)
Quarter: 2008Q3

REPORT INFORMATION
  Report Type: 
  Country: None (occurrence: None)
  Receive Date: 20080924
  Receipt Date: 20070717
  Transmission Date: 20090109
  Serious: No
  Sender: FDA-Public Use
  Company Number: US-BAYER-200712315BWH

PATIENT
  Sex: Male

DRUGS (1)
  1. CIPRO [Suspect]
     Indication: PROSTATE INFECTION
     Dosage: TOTAL DAILY DOSE: 1000 MG
     Route: 048
     Dates: start: 20070501

REACTIONS (1)
  - EYE SWELLING [None]
